FAERS Safety Report 6042010-7 (Version None)
Quarter: 2009Q1

REPORT INFORMATION
  Report Type: 
  Country: None (occurrence: None)
  Receive Date: 20090116
  Receipt Date: 20090109
  Transmission Date: 20090719
  Serious: Yes (Hospitalization, Other)
  Sender: FDA-Public Use
  Company Number: US-MERCK-0711USA04314

PATIENT
  Age: 61 Year
  Sex: Female
  Weight: 72 kg

DRUGS (9)
  1. FOSAMAX [Suspect]
     Indication: OSTEOPENIA
     Route: 048
     Dates: start: 20030701, end: 20070101
  2. FOSAMAX [Suspect]
     Indication: OSTEOPOROSIS
     Route: 048
     Dates: start: 20030701, end: 20070101
  3. ESTROGENS (UNSPECIFIED) [Concomitant]
     Route: 065
     Dates: start: 19990101
  4. LEVOXYL [Concomitant]
     Indication: THYROID DISORDER
     Route: 065
     Dates: start: 20000101
  5. ALLEGRA [Concomitant]
     Indication: HYPERSENSITIVITY
     Route: 065
     Dates: start: 20020101, end: 20070101
  6. SYNTHROID [Concomitant]
     Indication: THYROID DISORDER
     Route: 065
     Dates: start: 20000101, end: 20010101
  7. NAPROXEN [Concomitant]
     Indication: PAIN
     Route: 065
     Dates: start: 20010101, end: 20030101
  8. NAPROXEN [Concomitant]
     Route: 065
     Dates: start: 20010101, end: 20030101
  9. [THERAPY UNSPECIFIED] [Concomitant]
     Indication: BLOOD PRESSURE ABNORMAL
     Route: 065
     Dates: start: 20000101

REACTIONS (23)
  - ANXIETY [None]
  - ARTHRALGIA [None]
  - BACK PAIN [None]
  - BENIGN BONE NEOPLASM [None]
  - BLADDER DISORDER [None]
  - BLOOD CHOLESTEROL [None]
  - DENTAL CARIES [None]
  - ENDODONTIC PROCEDURE [None]
  - HYPERTENSION [None]
  - IMPAIRED HEALING [None]
  - INSOMNIA [None]
  - INTERVERTEBRAL DISC PROTRUSION [None]
  - MYALGIA [None]
  - NECK PAIN [None]
  - NECROSIS [None]
  - OEDEMA MOUTH [None]
  - ORAL INFECTION [None]
  - ORAL TORUS [None]
  - OSTEOMYELITIS [None]
  - OSTEONECROSIS [None]
  - PAIN IN EXTREMITY [None]
  - SUBCUTANEOUS ABSCESS [None]
  - TEMPOROMANDIBULAR JOINT SYNDROME [None]
